FAERS Safety Report 10521985 (Version 1)
Quarter: 2014Q4

REPORT INFORMATION
  Report Type: Spontaneous
  Country: US (occurrence: None)
  Receive Date: 20141014
  Receipt Date: 20141014
  Transmission Date: 20150528
  Serious: No
  Sender: FDA-Public Use
  Company Number: None

PATIENT
  Age: 64 Year
  Sex: Female

DRUGS (9)
  1. CALCIUM [Concomitant]
     Active Substance: CALCIUM
  2. DICLOFENAC [Concomitant]
     Active Substance: DICLOFENAC
  3. SYNTHROID [Concomitant]
     Active Substance: LEVOTHYROXINE SODIUM
  4. NYSTATIN. [Concomitant]
     Active Substance: NYSTATIN
  5. XELJANZ [Suspect]
     Active Substance: TOFACITINIB CITRATE
     Indication: RHEUMATOID ARTHRITIS
     Route: 048
     Dates: start: 20131023, end: 20141001
  6. VITAMIN B12 [Concomitant]
     Active Substance: CYANOCOBALAMIN
  7. VIT. D [Concomitant]
  8. MISOPROSTOL. [Concomitant]
     Active Substance: MISOPROSTOL
  9. VALACYCLOVIR [Concomitant]
     Active Substance: VALACYCLOVIR HYDROCHLORIDE

REACTIONS (1)
  - Nasopharyngitis [None]

NARRATIVE: CASE EVENT DATE: 20141009
